FAERS Safety Report 23138058 (Version 2)
Quarter: 2024Q3

REPORT INFORMATION
  Report Type: Spontaneous
  Country: JP (occurrence: JP)
  Receive Date: 20231102
  Receipt Date: 20240730
  Transmission Date: 20241017
  Serious: Yes (Other)
  Sender: MYLAN
  Company Number: JP-VIATRISJAPAN-2023M1108468AA

PATIENT
  Age: 24 Year
  Sex: Female

DRUGS (1)
  1. VENLAFAXINE HYDROCHLORIDE [Suspect]
     Active Substance: VENLAFAXINE HYDROCHLORIDE
     Indication: Depressive symptom
     Dosage: UNK
     Route: 048
     Dates: end: 202301

REACTIONS (2)
  - Activation syndrome [Recovered/Resolved]
  - Drug withdrawal syndrome [Recovered/Resolved]
